FAERS Safety Report 6374736-X (Version None)
Quarter: 2009Q3

REPORT INFORMATION
  Report Type: 
  Country: None (occurrence: None)
  Receive Date: 20090924
  Receipt Date: 20090910
  Transmission Date: 20100115
  Serious: Yes (Hospitalization)
  Sender: FDA-Public Use
  Company Number: PHHY2009CA23046

PATIENT
  Sex: Male

DRUGS (5)
  1. EXJADE [Suspect]
     Indication: MYELODYSPLASTIC SYNDROME
     Dosage: 1875 MG DAILY
     Route: 048
     Dates: start: 20090201
  2. EXJADE [Suspect]
     Indication: IRON OVERLOAD
  3. ASPIRIN [Concomitant]
     Dosage: 81 MG PER DAY
  4. PREVEX [Concomitant]
  5. INSULIN [Concomitant]

REACTIONS (2)
  - CORONARY ARTERY BYPASS [None]
  - INFECTION [None]
